FAERS Safety Report 21090946 (Version 1)
Quarter: 2022Q3

REPORT INFORMATION
  Report Type: Spontaneous
  Country: FR (occurrence: FR)
  Receive Date: 20220716
  Receipt Date: 20220716
  Transmission Date: 20221027
  Serious: Yes (Life-Threatening, Hospitalization)
  Sender: FDA-Public Use
  Company Number: None

PATIENT
  Age: 54 Year
  Sex: Female
  Weight: 70.7 kg

DRUGS (9)
  1. DIAZEPAM [Suspect]
     Active Substance: DIAZEPAM
     Indication: Anxiety
     Dosage: + 10MG AT BEDTIME, UNIT DOSE: 5 MG, FREQUENCY TIME : 6 HRS
  2. VENLAFAXINE HYDROCHLORIDE [Suspect]
     Active Substance: VENLAFAXINE HYDROCHLORIDE
     Indication: Depression
     Dosage: CHLORHYDRATE DE VENLAFAXINE, UNIT DOSE; 75 MG, FREQUENCY TIME : 12 HRS
     Dates: end: 20220623
  3. LOXAPINE [Suspect]
     Active Substance: LOXAPINE
     Indication: Depression
     Dosage: LOXAPAC, ORAL SOLUTION, UNIT DOSE: 50 MG, FREQUENCY TIME : 1 DAY
  4. HEXAQUINE [Suspect]
     Active Substance: NIAOULI OIL\QUININE BENZOATE\THIAMINE HYDROCHLORIDE
     Indication: Muscle spasms
     Dosage: UNIT DOSE: 2 DF, FREQUENCY TIME : 1 DAY
  5. LOXAPINE [Suspect]
     Active Substance: LOXAPINE
     Indication: Depression
     Dosage: STRENGTH:100 MG, UNIT DOSE: 100 MG, FREQUENCY TIME : 1 DAY
  6. LOXAPINE [Suspect]
     Active Substance: LOXAPINE
     Indication: Depression
     Dosage: UP TO 3/D, STRENGTH: 50 MG, UNIT DOSE: 50 MG, FREQUENCY TIME : 1 AS REQUIRED
  7. PANTOPRAZOLE [Concomitant]
     Active Substance: PANTOPRAZOLE
     Indication: Prophylaxis against gastrointestinal ulcer
     Dosage: UNIT DOSE: 20 MG, FREQUENCY TIME : 1 DAY
  8. METFORMIN HYDROCHLORIDE [Concomitant]
     Active Substance: METFORMIN HYDROCHLORIDE
     Indication: Type 2 diabetes mellitus
     Dosage: UNIT DOSE: 850 MG, FREQUENCY TIME : 12 HRS
  9. LORMETAZEPAM [Concomitant]
     Active Substance: LORMETAZEPAM
     Indication: Insomnia
     Dosage: UNIT DOSE: 2 MG, FREQUENCY TIME : 1 DAY

REACTIONS (1)
  - Congestive cardiomyopathy [Recovering/Resolving]

NARRATIVE: CASE EVENT DATE: 20220609
